FAERS Safety Report 5231443-4 (Version None)
Quarter: 2007Q1

REPORT INFORMATION
  Report Type: 
  Country: None (occurrence: None)
  Receive Date: 20070206
  Receipt Date: 20070129
  Transmission Date: 20070707
  Serious: Yes (Life-Threatening)
  Sender: FDA-Public Use
  Company Number: JP-SHR-JP-2006-033064

PATIENT
  Age: 65 Year
  Sex: Female

DRUGS (1)
  1. SOTALOL HYDROCHLORIDE [Suspect]
     Indication: ATRIAL FIBRILLATION
     Dosage: 40 MG, 2X/DAY
     Route: 048
     Dates: start: 20060718, end: 20060718

REACTIONS (4)
  - BRADYCARDIA [None]
  - CARDIAC ARREST [None]
  - CARDIOACTIVE DRUG LEVEL INCREASED [None]
  - ELECTROMECHANICAL DISSOCIATION [None]
